FAERS Safety Report 16108485 (Version 2)
Quarter: 2019Q3

REPORT INFORMATION
  Report Type: Report from Study
  Country: US (occurrence: US)
  Receive Date: 20190323
  Receipt Date: 20190703
  Transmission Date: 20191004
  Serious: Yes (Hospitalization)
  Sender: FDA-Public Use
  Company Number: PHEH2019US012374

PATIENT
  Age: 40 Year
  Sex: Female

DRUGS (1)
  1. GILENYA [Suspect]
     Active Substance: FINGOLIMOD HYDROCHLORIDE
     Indication: MULTIPLE SCLEROSIS
     Dosage: 0.5 MG, QD
     Route: 048
     Dates: start: 20190223

REACTIONS (7)
  - Hip fracture [Unknown]
  - Femur fracture [Unknown]
  - Muscle spasticity [Unknown]
  - Pain in extremity [Unknown]
  - Wrist fracture [Unknown]
  - Seasonal allergy [Unknown]
  - Fall [Unknown]

NARRATIVE: CASE EVENT DATE: 20190223
